FAERS Safety Report 7428428-6 (Version None)
Quarter: 2011Q2

REPORT INFORMATION
  Report Type: 
  Country: None (occurrence: None)
  Receive Date: 20110421
  Receipt Date: 20110411
  Transmission Date: 20111010
  Serious: Yes (Hospitalization)
  Sender: FDA-Public Use
  Company Number: PHHY2011US18502

PATIENT
  Age: 58 Year
  Sex: Female

DRUGS (6)
  1. NORVASC [Concomitant]
     Indication: HYPERTENSION
     Dosage: 5 MG
     Route: 048
  2. PROZAC [Concomitant]
     Indication: DEPRESSION
     Dosage: 40 MG
     Route: 048
  3. LORCET-HD [Concomitant]
     Indication: SPINAL OSTEOARTHRITIS
     Dosage: 10/650 MG
     Route: 048
  4. RECLAST [Suspect]
     Indication: OSTEOPOROSIS
     Dosage: 5 MG, ONCE YEARLY
     Route: 042
     Dates: start: 20110222
  5. ZOCOR [Concomitant]
     Indication: HYPERLIPIDAEMIA
     Dosage: 40 MG
     Route: 048
  6. PROTONIX [Concomitant]
     Indication: GASTROOESOPHAGEAL REFLUX DISEASE
     Dosage: 40 MG
     Route: 048

REACTIONS (11)
  - SEPTIC SHOCK [None]
  - PNEUMONIA [None]
  - MALAISE [None]
  - PAIN [None]
  - MYALGIA [None]
  - INFLUENZA LIKE ILLNESS [None]
  - RENAL FAILURE [None]
  - SEPSIS [None]
  - FATIGUE [None]
  - RESPIRATORY FAILURE [None]
  - GENERAL PHYSICAL HEALTH DETERIORATION [None]
